FAERS Safety Report 9157632 (Version 2)
Quarter: 2014Q3

REPORT INFORMATION
  Report Type: Spontaneous
  Country: US (occurrence: US)
  Receive Date: 20130312
  Receipt Date: 20140801
  Transmission Date: 20150326
  Serious: No
  Sender: FDA-Public Use
  Company Number: US-ASTRAZENECA-2013SE08471

PATIENT
  Age: 71 Year
  Sex: Male
  Weight: 81.6 kg

DRUGS (2)
  1. ENAPRIL [Concomitant]
     Active Substance: ENALAPRIL
     Indication: HYPERTENSION
  2. CRESTOR [Suspect]
     Active Substance: ROSUVASTATIN CALCIUM
     Indication: BLOOD CHOLESTEROL INCREASED
     Route: 048
     Dates: start: 201212

REACTIONS (2)
  - Psoriasis [Unknown]
  - Sexual dysfunction [Unknown]
